FAERS Safety Report 4557740-3 (Version None)
Quarter: 2005Q1

REPORT INFORMATION
  Report Type: 
  Country: None (occurrence: None)
  Receive Date: 20050103
  Receipt Date: 20040803
  Transmission Date: 20050727
  Serious: Yes (Other)
  Sender: FDA-Public Use
  Company Number: 2004UW16472

PATIENT
  Age: 60 Year
  Sex: Male
  Weight: 83.9154 kg

DRUGS (6)
  1. CRESTOR [Suspect]
     Indication: BLOOD CHOLESTEROL INCREASED
     Dosage: 10 MG
  2. PROZAC [Concomitant]
  3. NADOLOL [Concomitant]
  4. ASPIRIN [Concomitant]
  5. VITAMINS NOS [Concomitant]
  6. FLONASE [Concomitant]

REACTIONS (4)
  - ASTHENIA [None]
  - DIARRHOEA [None]
  - INSOMNIA [None]
  - MUSCLE RIGIDITY [None]
